FAERS Safety Report 7109766-3 (Version None)
Quarter: 2010Q4

REPORT INFORMATION
  Report Type: 
  Country: None (occurrence: None)
  Receive Date: 20101116
  Receipt Date: 20101116
  Transmission Date: 20110411
  Serious: Yes (Hospitalization)
  Sender: FDA-Public Use
  Company Number: None

PATIENT
  Sex: Male

DRUGS (6)
  1. SUNITINIB MALATE [Suspect]
     Indication: BRAIN NEOPLASM MALIGNANT
     Dosage: 12.5 MG 1X ORAL
     Route: 048
     Dates: start: 20101008, end: 20101105
  2. KEPPRA [Concomitant]
  3. PEPCID [Concomitant]
  4. XANAX [Concomitant]
  5. DEXAMETHASONE [Concomitant]
  6. LEXAPRO [Concomitant]

REACTIONS (1)
  - HEADACHE [None]
